FAERS Safety Report 8174782-X (Version None)
Quarter: 2012Q1

REPORT INFORMATION
  Report Type: 
  Country: None (occurrence: None)
  Receive Date: 20120229
  Receipt Date: 20120224
  Transmission Date: 20120608
  Serious: Yes (Other)
  Sender: FDA-Public Use
  Company Number: US-PFIZER INC-2012048729

PATIENT
  Age: 14 Year
  Sex: Male
  Weight: 60.3 kg

DRUGS (1)
  1. CRIZOTINIB [Suspect]
     Indication: ANAPLASTIC LARGE CELL LYMPHOMA T- AND NULL-CELL TYPES
     Dosage: 165 MG/M2, 2X/DAY
     Dates: start: 20100913, end: 20120201

REACTIONS (1)
  - CYANOPSIA [None]
